FAERS Safety Report 9133051 (Version 1)
Quarter: 2013Q1

REPORT INFORMATION
  Report Type: Spontaneous
  Country: MY (occurrence: MY)
  Receive Date: 20130301
  Receipt Date: 20130301
  Transmission Date: 20140127
  Serious: Yes (Hospitalization, Other)
  Sender: FDA-Public Use
  Company Number: MY-ASTRAZENECA-2013SE11839

PATIENT
  Sex: Female

DRUGS (2)
  1. NEXIUM [Suspect]
     Route: 048
  2. BUSCOPAN [Concomitant]

REACTIONS (3)
  - Hypotension [Unknown]
  - Anaphylactoid shock [Unknown]
  - Urticaria [Unknown]
